FAERS Safety Report 5753047-7 (Version None)
Quarter: 2008Q2

REPORT INFORMATION
  Report Type: 
  Country: None (occurrence: None)
  Receive Date: 20080527
  Receipt Date: 20080509
  Transmission Date: 20081010
  Serious: Yes (Death, Life-Threatening)
  Sender: FDA-Public Use
  Company Number: 190001L08NZL

PATIENT
  Age: 40 Year
  Sex: Female

DRUGS (3)
  1. MENOTROPHIN (MENOTROPHIN) [Suspect]
     Indication: IN VITRO FERTILISATION
  2. CHORIONIC GONADTROPIN [Suspect]
     Indication: IN VITRO FERTILISATION
  3. BUSERELIN [Concomitant]

REACTIONS (24)
  - ABDOMINAL PAIN [None]
  - ASCITES [None]
  - BRAIN DEATH [None]
  - CEREBRAL HAEMORRHAGE [None]
  - CONDITION AGGRAVATED [None]
  - DYSARTHRIA [None]
  - EMBOLIC CEREBRAL INFARCTION [None]
  - EYE PAIN [None]
  - GENERAL PHYSICAL HEALTH DETERIORATION [None]
  - HAEMATOCRIT INCREASED [None]
  - HAEMORRHAGIC CYST [None]
  - INCOHERENT [None]
  - MIGRAINE [None]
  - MUSCULAR WEAKNESS [None]
  - NAUSEA [None]
  - OVARIAN HYPERSTIMULATION SYNDROME [None]
  - PARAESTHESIA [None]
  - PLEURAL EFFUSION [None]
  - POLYCYTHAEMIA [None]
  - RESPIRATORY DISTRESS [None]
  - SOMNOLENCE [None]
  - THROMBOSIS [None]
  - URINE OUTPUT DECREASED [None]
  - VOMITING [None]
